FAERS Safety Report 13196986 (Version 2)
Quarter: 2017Q1

REPORT INFORMATION
  Report Type: Spontaneous
  Country: US (occurrence: US)
  Receive Date: 20170208
  Receipt Date: 20170323
  Transmission Date: 20170428
  Serious: Yes (Death)
  Sender: FDA-Public Use
  Company Number: US-PFIZER INC-2017054553

PATIENT
  Age: 72 Year
  Sex: Female

DRUGS (18)
  1. MELOXICAM. [Concomitant]
     Active Substance: MELOXICAM
     Dosage: 15 MG, DAILY
     Route: 048
     Dates: start: 20130131, end: 20160509
  2. TORADOL [Concomitant]
     Active Substance: KETOROLAC TROMETHAMINE
     Indication: SPINAL OSTEOARTHRITIS
     Dosage: 60 MG, UNK, (60 MG IM X 1)
     Route: 030
     Dates: start: 20141007, end: 20141007
  3. DEPO-MEDROL [Concomitant]
     Active Substance: METHYLPREDNISOLONE ACETATE
     Indication: SPINAL OSTEOARTHRITIS
     Dosage: 80 MG, UNK, (80 MG IMX1)
     Route: 030
     Dates: start: 20141007, end: 20141007
  4. AMLODIPINE BESYLATE. [Concomitant]
     Active Substance: AMLODIPINE BESYLATE
     Indication: ESSENTIAL HYPERTENSION
     Dosage: 5 MG, DAILY
     Route: 048
     Dates: start: 20151130
  5. VOLTAREN [Concomitant]
     Active Substance: DICLOFENAC SODIUM
     Indication: ARTHRALGIA
     Dosage: UNK, AS NEEDED (APPLY TOP TID PRN PAIN)
     Route: 061
     Dates: start: 20130603
  6. LISINOPRIL AND HYDROCHLOROTHIAZIDE [Concomitant]
     Active Substance: HYDROCHLOROTHIAZIDE\LISINOPRIL
     Indication: ESSENTIAL HYPERTENSION
     Dosage: 1 DF, 2X/DAY [HYDROCHLOROTHIAZIDE: 12.5 MG] / [LISINOPRIL: 20 MG]
     Route: 048
  7. CLOBETASOL [Concomitant]
     Active Substance: CLOBETASOL
     Dosage: 0.05 %, AS NEEDED, (APPLY TOP BID TO AFFECTED AREAS BID PRN)
     Route: 061
     Dates: start: 20140529
  8. PREDNISONE. [Concomitant]
     Active Substance: PREDNISONE
     Dosage: 3 MG, 3X/DAY, (AS DIRECTED, FOR PREDNISONE TAPER)
     Route: 048
     Dates: start: 20170112
  9. METHOTREXATE SODIUM. [Concomitant]
     Active Substance: METHOTREXATE SODIUM
     Dosage: UNK
     Route: 048
     Dates: start: 20150615
  10. VOLTAREN [Concomitant]
     Active Substance: DICLOFENAC SODIUM
     Indication: BACK PAIN
  11. XELJANZ XR [Suspect]
     Active Substance: TOFACITINIB CITRATE
     Indication: RHEUMATOID ARTHRITIS
     Dosage: 11 MG, DAILY
     Route: 048
     Dates: start: 20170112, end: 20170128
  12. CALCIUM CARBONATE AND VITAMIN D [Concomitant]
     Active Substance: CALCIUM CARBONATE\VITAMIN D
     Indication: RHEUMATOID ARTHRITIS
     Dosage: 1 DF, 2X/DAY [CALCIUM CARBONATE: 600 MG] / [COLECALCIFEROL: 400 INTI UNITS]
     Route: 048
  13. METHOTREXATE SODIUM. [Concomitant]
     Active Substance: METHOTREXATE SODIUM
     Indication: RHEUMATOID ARTHRITIS
     Dosage: 20 MG, WEEKLY (8 TABS (20 MG) PO WEEKLY)
     Route: 048
     Dates: start: 20130131, end: 20161108
  14. VOLTAREN [Concomitant]
     Active Substance: DICLOFENAC SODIUM
     Indication: ARTHRALGIA
  15. FOLIC ACID. [Concomitant]
     Active Substance: FOLIC ACID
     Indication: INCORRECT DRUG ADMINISTRATION DURATION
     Dosage: 2 MG, DAILY
     Route: 048
     Dates: start: 20130131
  16. TYLENOL WITH CODEIN #4 [Concomitant]
     Indication: RHEUMATOID ARTHRITIS
     Dosage: 1 DF, AS NEEDED  [CODEINE PHOSPHATE: 60 MG] / [PARACETAMOL: 300 MG]
     Route: 048
     Dates: start: 20141007, end: 20170112
  17. TYLENOL WITH CODEIN #4 [Concomitant]
     Indication: PAIN
  18. PREDNISONE. [Concomitant]
     Active Substance: PREDNISONE
     Dosage: 5 MG, 2X/DAY, (1 TAB PO BID WITH TAPER AS DIRECTED)
     Route: 048
     Dates: start: 20130131, end: 20170112

REACTIONS (1)
  - Death [Fatal]

NARRATIVE: CASE EVENT DATE: 20170128
